FAERS Safety Report 22648001 (Version 1)
Quarter: 2023Q2

REPORT INFORMATION
  Report Type: Spontaneous
  Country: US (occurrence: US)
  Receive Date: 20230628
  Receipt Date: 20230628
  Transmission Date: 20230721
  Serious: No
  Sender: FDA-Public Use
  Company Number: US-TWI PHARMACEUTICAL, INC-2023SCTW000031

PATIENT

DRUGS (9)
  1. DEXLANSOPRAZOLE [Suspect]
     Active Substance: DEXLANSOPRAZOLE
     Indication: Gastrooesophageal reflux disease
     Dosage: 1 DOSAGE FORM, OD
     Route: 048
     Dates: start: 20230401
  2. BUPROPION [Concomitant]
     Active Substance: BUPROPION
     Indication: Attention deficit hyperactivity disorder
     Dosage: 1 DOSAGE FORM, OD
     Route: 065
  3. LEVOCETIRIZINE DIHYDROCHLORIDE [Concomitant]
     Active Substance: LEVOCETIRIZINE DIHYDROCHLORIDE
     Indication: Seasonal allergy
     Dosage: 1 DOSAGE FORM, OD
     Route: 065
  4. HYDROXYZINE HYDROCHLORIDE [Concomitant]
     Active Substance: HYDROXYZINE HYDROCHLORIDE
     Indication: Hypersensitivity
     Dosage: 1 DOSAGE FORM, OD, AT BEDTIME
     Route: 065
  5. ACETAMINOPHEN [Concomitant]
     Active Substance: ACETAMINOPHEN
     Indication: Pain
     Dosage: UNK UNK, PRN, NOT MORE THAN 4000MG A DAY
     Route: 065
  6. OZEMPIC [Concomitant]
     Active Substance: SEMAGLUTIDE
     Indication: Weight control
     Dosage: 1 DOSAGE FORM, WEEKLY
     Route: 058
  7. OZEMPIC [Concomitant]
     Active Substance: SEMAGLUTIDE
     Indication: Polycystic ovaries
  8. VITAMIN D3 [Concomitant]
     Active Substance: CHOLECALCIFEROL
     Indication: Vitamin D deficiency
     Dosage: 5000 INTERNATIONAL UNIT, OD
     Route: 065
  9. VITAMIN B12 [Concomitant]
     Active Substance: CYANOCOBALAMIN
     Indication: Vitamin B12 deficiency
     Dosage: 1 DOSAGE FORM, OD
     Route: 060

REACTIONS (3)
  - Gastrooesophageal reflux disease [None]
  - Product residue present [Recovered/Resolved]
  - Drug ineffective [Unknown]

NARRATIVE: CASE EVENT DATE: 20230601
